FAERS Safety Report 7844745-X (Version None)
Quarter: 2011Q4

REPORT INFORMATION
  Report Type: 
  Country: None (occurrence: None)
  Receive Date: 20111025
  Receipt Date: 20111014
  Transmission Date: 20120403
  Serious: Yes (Hospitalization)
  Sender: FDA-Public Use
  Company Number: US-GLAXOSMITHKLINE-A0784394A

PATIENT
  Age: 70 Year
  Sex: Female
  Weight: 83.2 kg

DRUGS (4)
  1. AVANDIA [Suspect]
     Indication: DIABETES MELLITUS
     Route: 048
     Dates: start: 20050301, end: 20060201
  2. LOVASTATIN [Concomitant]
  3. INSULIN [Concomitant]
  4. GLUCOTROL [Concomitant]

REACTIONS (5)
  - MITRAL VALVE INCOMPETENCE [None]
  - PULMONARY OEDEMA [None]
  - MYOCARDIAL INFARCTION [None]
  - CARDIAC FAILURE CONGESTIVE [None]
  - CORONARY ARTERY DISEASE [None]
